FAERS Safety Report 5744438-9 (Version None)
Quarter: 2008Q2

REPORT INFORMATION
  Report Type: 
  Country: None (occurrence: None)
  Receive Date: 20080520
  Receipt Date: 20080508
  Transmission Date: 20081010
  Serious: Yes (Hospitalization)
  Sender: FDA-Public Use
  Company Number: GB-ROCHE-563303

PATIENT
  Sex: Male

DRUGS (15)
  1. CLONAZEPAM [Suspect]
     Indication: DRUG USE FOR UNKNOWN INDICATION
  2. CALCIUM CHLORIDE [Suspect]
     Indication: DRUG USE FOR UNKNOWN INDICATION
  3. FOLIC ACID [Suspect]
     Indication: DRUG USE FOR UNKNOWN INDICATION
  4. ISOFLURANE [Suspect]
     Indication: DRUG USE FOR UNKNOWN INDICATION
  5. LACTULOSE [Suspect]
     Indication: DRUG USE FOR UNKNOWN INDICATION
  6. LITHIUM SALT [Suspect]
  7. METOCLOPRAMIDE [Suspect]
     Indication: DRUG USE FOR UNKNOWN INDICATION
  8. OLANZAPINE [Suspect]
     Indication: DRUG USE FOR UNKNOWN INDICATION
  9. POTASSIUM CHLORIDE [Suspect]
     Indication: DRUG USE FOR UNKNOWN INDICATION
  10. RANITIDINE [Suspect]
     Indication: DRUG USE FOR UNKNOWN INDICATION
  11. SODIUM CHLORIDE [Suspect]
     Indication: DRUG USE FOR UNKNOWN INDICATION
  12. SODIUM CITRATE [Suspect]
     Indication: DRUG USE FOR UNKNOWN INDICATION
  13. SODIUM LACTATE [Suspect]
     Indication: DRUG USE FOR UNKNOWN INDICATION
  14. SUXAMETHONIUM [Suspect]
     Indication: DRUG USE FOR UNKNOWN INDICATION
  15. THIOPENTONE [Suspect]
     Indication: DRUG USE FOR UNKNOWN INDICATION

REACTIONS (3)
  - DRUG EXPOSURE DURING PREGNANCY [None]
  - PREMATURE BABY [None]
  - THERAPEUTIC AGENT TOXICITY [None]
